FAERS Safety Report 25068220 (Version 2)
Quarter: 2025Q1

REPORT INFORMATION
  Report Type: Spontaneous
  Country: JP (occurrence: JP)
  Receive Date: 20250312
  Receipt Date: 20250313
  Transmission Date: 20250409
  Serious: Yes (Hospitalization, Other)
  Sender: PFIZER
  Company Number: JP-PFIZER INC-202500052886

PATIENT

DRUGS (1)
  1. METHOTREXATE SODIUM [Suspect]
     Active Substance: METHOTREXATE SODIUM

REACTIONS (9)
  - Acute kidney injury [Unknown]
  - Drug level increased [Unknown]
  - Cerebral disorder [Unknown]
  - Liver disorder [Unknown]
  - Hypervolaemia [Unknown]
  - Altered state of consciousness [Recovering/Resolving]
  - Cardiomyopathy [Unknown]
  - Arrhythmia [Unknown]
  - Multiple organ dysfunction syndrome [Unknown]
